FAERS Safety Report 25147150 (Version 1)
Quarter: 2025Q2

REPORT INFORMATION
  Report Type: Spontaneous
  Country: US (occurrence: US)
  Receive Date: 20250401
  Receipt Date: 20250401
  Transmission Date: 20250716
  Serious: Yes (Other)
  Sender: DOMPE FARMACEUTICI
  Company Number: US-FARMAPROD-202503-0939

PATIENT
  Sex: Male

DRUGS (10)
  1. OXERVATE [Suspect]
     Active Substance: CENEGERMIN-BKBJ
     Indication: Neurotrophic keratopathy
     Route: 047
     Dates: start: 20250128
  2. TYLENOL [Concomitant]
     Active Substance: ACETAMINOPHEN
  3. ASPIRIN [Concomitant]
     Active Substance: ASPIRIN
  4. NAPROXEN [Concomitant]
     Active Substance: NAPROXEN
  5. FLOMAX [Concomitant]
     Active Substance: TAMSULOSIN HYDROCHLORIDE
  6. LIPITOR [Concomitant]
     Active Substance: ATORVASTATIN CALCIUM
  7. GEMTESA [Concomitant]
     Active Substance: VIBEGRON
  8. EPLERENONE [Concomitant]
     Active Substance: EPLERENONE
  9. LISINOPRIL [Concomitant]
     Active Substance: LISINOPRIL
  10. XIIDRA [Concomitant]
     Active Substance: LIFITEGRAST

REACTIONS (4)
  - Cerebrovascular accident [Unknown]
  - Vision blurred [Unknown]
  - Eye pain [Unknown]
  - Hypoaesthesia eye [Unknown]
